FAERS Safety Report 6616615-6 (Version None)
Quarter: 2010Q1

REPORT INFORMATION
  Report Type: 
  Country: None (occurrence: None)
  Receive Date: 20100305
  Receipt Date: 20100223
  Transmission Date: 20100710
  Serious: Yes (Other)
  Sender: FDA-Public Use
  Company Number: US-PFIZER INC-2010026832

PATIENT
  Sex: Female
  Weight: 61.678 kg

DRUGS (5)
  1. SERTRALINE HCL [Suspect]
     Indication: DEPRESSION
     Dosage: 200 MG, 1X/DAY
  2. LEVOXYL [Concomitant]
     Indication: THYROID DISORDER
     Dosage: UNK
  3. LIOTHYRONINE [Concomitant]
     Indication: THYROID DISORDER
     Dosage: UNK
  4. ATIVAN [Concomitant]
     Dosage: UNK
  5. LIPITOR [Concomitant]
     Indication: BLOOD CHOLESTEROL INCREASED
     Dosage: UNK

REACTIONS (4)
  - DRUG INEFFECTIVE [None]
  - HYPOTHYROIDISM [None]
  - VITAMIN B COMPLEX DEFICIENCY [None]
  - VITAMIN D DECREASED [None]
